FAERS Safety Report 8431661 (Version 10)
Quarter: 2013Q2

REPORT INFORMATION
  Report Type: Spontaneous
  Country: US (occurrence: US)
  Receive Date: 20120228
  Receipt Date: 20130424
  Transmission Date: 20140414
  Serious: Yes (Hospitalization, Disabling, Other)
  Sender: FDA-Public Use
  Company Number: US-009507513-1202USA03889

PATIENT
  Sex: Female
  Weight: 75.75 kg

DRUGS (6)
  1. FOSAMAX [Suspect]
     Indication: BONE DENSITY DECREASED
     Dosage: 70 MG, UNK
     Route: 048
     Dates: start: 200101
  2. FOSAMAX [Suspect]
     Dosage: UNK
     Route: 048
     Dates: start: 1997
  3. MK-9278 [Concomitant]
     Dosage: 1 IU, QD
     Dates: start: 2002, end: 2012
  4. VITAMIN D (UNSPECIFIED) [Concomitant]
     Dosage: 1 IU, QD
     Dates: start: 2002, end: 2012
  5. CHONDROITIN SULFATE SODIUM (+) DIMETHYL SULFONE (+) GLUCOSAMINE [Concomitant]
     Dosage: 1 IU, QD
     Dates: start: 2002, end: 2012
  6. LIPITOR [Concomitant]
     Dosage: UNK
     Dates: start: 2004, end: 2012

REACTIONS (49)
  - Femur fracture [Recovered/Resolved]
  - Arthropathy [Unknown]
  - Coronary artery disease [Unknown]
  - Gallbladder disorder [Unknown]
  - Angiopathy [Unknown]
  - Back injury [Not Recovered/Not Resolved]
  - Coronary artery bypass [Unknown]
  - Cerebrovascular accident [Unknown]
  - Arthropathy [Unknown]
  - Compression fracture [Unknown]
  - Muscular weakness [Unknown]
  - Visual impairment [Unknown]
  - Osteopenia [Unknown]
  - Hypertension [Unknown]
  - Ventricular extrasystoles [Unknown]
  - Low turnover osteopathy [Unknown]
  - Electrocardiogram T wave abnormal [Unknown]
  - Lung disorder [Unknown]
  - Ketonuria [Unknown]
  - Osteoarthritis [Unknown]
  - Muscle strain [Unknown]
  - Cyst [Unknown]
  - Ankle fracture [Unknown]
  - Intervertebral disc degeneration [Unknown]
  - Stress fracture [Unknown]
  - Vertebroplasty [Unknown]
  - Osteoarthritis [Unknown]
  - Umbilical hernia [Unknown]
  - Gout [Unknown]
  - Rheumatoid arthritis [Unknown]
  - Granuloma skin [Unknown]
  - Blepharitis [Unknown]
  - Ear discomfort [Unknown]
  - Ankle deformity [Unknown]
  - Vascular anomaly [Unknown]
  - Hernia [Unknown]
  - Vaginismus [Unknown]
  - Lichen sclerosus [Unknown]
  - Faecal incontinence [Unknown]
  - Breast disorder [Recovering/Resolving]
  - Diverticulum [Unknown]
  - Postmenopausal haemorrhage [Unknown]
  - Muscular weakness [Unknown]
  - Joint swelling [Unknown]
  - Musculoskeletal chest pain [Recovering/Resolving]
  - Pain in extremity [Unknown]
  - Local swelling [Unknown]
  - Pain in jaw [Unknown]
  - Myalgia [Unknown]
